FAERS Safety Report 9264812 (Version 1)
Quarter: 2013Q2

REPORT INFORMATION
  Report Type: Spontaneous
  Country: US (occurrence: US)
  Receive Date: 20130501
  Receipt Date: 20130501
  Transmission Date: 20140414
  Serious: Yes (Other)
  Sender: FDA-Public Use
  Company Number: US-TEVA-401455USA

PATIENT
  Sex: 0

DRUGS (1)
  1. CLONAZEPAM [Suspect]
     Route: 048

REACTIONS (2)
  - Pancreatitis [Unknown]
  - Irritable bowel syndrome [Unknown]
